FAERS Safety Report 23353876 (Version 4)
Quarter: 2024Q1

REPORT INFORMATION
  Report Type: Spontaneous
  Country: US (occurrence: US)
  Receive Date: 20240101
  Receipt Date: 20240112
  Transmission Date: 20240409
  Serious: No
  Sender: FDA-Public Use
  Company Number: US-OPELLA-2023OHG020742

PATIENT

DRUGS (1)
  1. ICY HOT PAIN RELIEVING CREAM [Suspect]
     Active Substance: MENTHOL\METHYL SALICYLATE
     Indication: Product used for unknown indication

REACTIONS (2)
  - No adverse event [Unknown]
  - Drug ineffective [Unknown]
